FAERS Safety Report 10201392 (Version 6)
Quarter: 2015Q2

REPORT INFORMATION
  Report Type: Report from Study
  Country: NL (occurrence: NL)
  Receive Date: 20140528
  Receipt Date: 20150414
  Transmission Date: 20150821
  Serious: Yes (Hospitalization)
  Sender: FDA-Public Use
  Company Number: NL-B.I. PHARMACEUTICALS,INC./RIDGEFIELD-2014-BI-22838BI

PATIENT
  Age: 56 Year
  Sex: Male

DRUGS (16)
  1. ACETYLSALICYL ZUUR [Concomitant]
     Indication: ANGINA PECTORIS
     Dosage: 80 MG
     Route: 048
  2. OXAZEPAM. [Concomitant]
     Active Substance: OXAZEPAM
     Indication: RESTLESSNESS
     Route: 048
  3. LEVOTHYROXINE [Concomitant]
     Active Substance: LEVOTHYROXINE
     Indication: HYPERTHYROIDISM
     Route: 048
  4. METOPROLOL [Concomitant]
     Active Substance: METOPROLOL
     Indication: ANGINA PECTORIS
     Dosage: 47.5 MG
     Route: 048
  5. DOXYCYCLINE. [Concomitant]
     Active Substance: DOXYCYCLINE
     Indication: PALMAR-PLANTAR ERYTHRODYSAESTHESIA SYNDROME
  6. CICALFATE [Concomitant]
     Indication: PALMAR-PLANTAR ERYTHRODYSAESTHESIA SYNDROME
  7. BIBW 2992 [Suspect]
     Active Substance: AFATINIB
     Indication: SQUAMOUS CELL CARCINOMA OF HEAD AND NECK
     Dosage: 40 MG
     Route: 048
     Dates: start: 20140424, end: 20140522
  8. THIAMAZOL [Concomitant]
     Active Substance: METHIMAZOLE
     Indication: HYPERTHYROIDISM
     Route: 048
  9. REPARATION INTENSE NEUTROGENA [Concomitant]
     Indication: PALMAR-PLANTAR ERYTHRODYSAESTHESIA SYNDROME
  10. ATORVASTATINE [Concomitant]
     Active Substance: ATORVASTATIN
     Indication: ANGINA PECTORIS
     Dosage: 40 MG
     Route: 048
  11. CICALFATE [Concomitant]
     Indication: RASH
     Route: 048
     Dates: start: 20140403
  12. ISOSORBIDE NITRAAT [Concomitant]
     Indication: ANGINA PECTORIS
     Route: 048
  13. DOXYCYCLINE. [Concomitant]
     Active Substance: DOXYCYCLINE
     Indication: RASH
     Route: 048
     Dates: start: 20140403
  14. REPARATION INTENSE NEUTROGENA [Concomitant]
     Indication: RASH
     Route: 048
     Dates: start: 20140403
  15. PARACETAMOL [Concomitant]
     Active Substance: ACETAMINOPHEN
     Indication: OROPHARYNGEAL PAIN
     Route: 048
     Dates: start: 20130106
  16. FERROFUMARAAT [Concomitant]
     Indication: ANAEMIA
     Route: 048
     Dates: start: 20140403

REACTIONS (2)
  - Pancreatitis relapsing [Recovered/Resolved]
  - Macular oedema [Not Recovered/Not Resolved]

NARRATIVE: CASE EVENT DATE: 20140522
